FAERS Safety Report 5479730-9 (Version None)
Quarter: 2007Q4

REPORT INFORMATION
  Report Type: 
  Country: None (occurrence: None)
  Receive Date: 20071008
  Receipt Date: 20070927
  Transmission Date: 20080405
  Serious: Yes (Other)
  Sender: FDA-Public Use
  Company Number: US-JNJFOC-20071000630

PATIENT
  Sex: Male
  Weight: 20.41 kg

DRUGS (3)
  1. CONCERTA [Suspect]
     Route: 048
  2. CONCERTA [Suspect]
     Indication: ATTENTION DEFICIT/HYPERACTIVITY DISORDER
     Route: 048
  3. TRIAMINIC SRT [Suspect]
     Indication: NASOPHARYNGITIS
     Route: 065

REACTIONS (1)
  - ABNORMAL BEHAVIOUR [None]
